FAERS Safety Report 24567456 (Version 1)
Quarter: 2024Q4

REPORT INFORMATION
  Report Type: Spontaneous
  Country: US (occurrence: US)
  Receive Date: 20241030
  Receipt Date: 20241030
  Transmission Date: 20250115
  Serious: Yes (Hospitalization)
  Sender: NOVITIUM PHARMA
  Company Number: US-NOVITIUMPHARMA-2024USNVP02394

PATIENT
  Age: 63 Year
  Sex: Female

DRUGS (14)
  1. PREDNISONE [Suspect]
     Active Substance: PREDNISONE
     Indication: Systemic lupus erythematosus
  2. PREDNISONE [Suspect]
     Active Substance: PREDNISONE
     Dosage: DOSE INCREASED
  3. PREDNISONE [Suspect]
     Active Substance: PREDNISONE
     Dosage: INCREASED TO12HOURS
  4. HYDROXYCHLOROQUINE SULFATE [Suspect]
     Active Substance: HYDROXYCHLOROQUINE SULFATE
     Indication: Systemic lupus erythematosus
  5. AZATHIOPRINE [Concomitant]
     Active Substance: AZATHIOPRINE
     Indication: Systemic lupus erythematosus
     Dosage: DOSE INCREASED
  6. METHOTREXATE [Concomitant]
     Active Substance: METHOTREXATE
     Indication: Systemic lupus erythematosus
     Dosage: DOSE INCREASED
  7. CEPHALEXIN [Concomitant]
     Active Substance: CEPHALEXIN
     Indication: Cellulitis
  8. DOXYCYCLINE [Concomitant]
     Active Substance: DOXYCYCLINE
     Indication: Skin plaque
  9. AMOXICILLIN\CLAVULANIC ACID [Concomitant]
     Active Substance: AMOXICILLIN\CLAVULANIC ACID
     Indication: Systemic lupus erythematosus
  10. CLINDAMYCIN [Concomitant]
     Active Substance: CLINDAMYCIN
     Indication: Systemic lupus erythematosus
  11. VANCOMYCIN [Concomitant]
     Active Substance: VANCOMYCIN
     Indication: Systemic lupus erythematosus
  12. CEFTRIAXONE [Concomitant]
     Active Substance: CEFTRIAXONE
     Indication: Systemic lupus erythematosus
  13. DELAFLOXACIN [Concomitant]
     Active Substance: DELAFLOXACIN
     Indication: Systemic lupus erythematosus
  14. PIPERACILLIN SODIUM\TAZOBACTAM SODIUM [Concomitant]
     Active Substance: PIPERACILLIN SODIUM\TAZOBACTAM SODIUM
     Indication: Systemic lupus erythematosus

REACTIONS (1)
  - Cutaneous tuberculosis [Unknown]
